FAERS Safety Report 7200443-7 (Version None)
Quarter: 2010Q4

REPORT INFORMATION
  Report Type: 
  Country: None (occurrence: None)
  Receive Date: 20101228
  Receipt Date: 20101216
  Transmission Date: 20110411
  Serious: Yes (Other)
  Sender: FDA-Public Use
  Company Number: CA-MERCK-1012USA02770

PATIENT
  Age: 78 Year
  Sex: Female
  Weight: 68 kg

DRUGS (1)
  1. ZETIA [Suspect]
     Route: 048

REACTIONS (8)
  - EPISTAXIS [None]
  - ERYTHEMA [None]
  - EYE PAIN [None]
  - NASAL DISCOMFORT [None]
  - RASH MACULAR [None]
  - SKIN REACTION [None]
  - SWELLING FACE [None]
  - THROAT IRRITATION [None]
